FAERS Safety Report 18967667 (Version 1)
Quarter: 2021Q1

REPORT INFORMATION
  Report Type: Spontaneous
  Country: US (occurrence: US)
  Receive Date: 20210304
  Receipt Date: 20210304
  Transmission Date: 20210420
  Serious: No
  Sender: FDA-Public Use
  Company Number: US-BEH-2021128962

PATIENT
  Sex: Female

DRUGS (3)
  1. TYLENOL 8HR [Concomitant]
     Active Substance: ACETAMINOPHEN
     Indication: PREMEDICATION
     Route: 065
  2. BENADRYL 24 D [Concomitant]
     Active Substance: LORATADINE\PSEUDOEPHEDRINE SULFATE
     Indication: PREMEDICATION
     Dosage: 2 TABLETS
     Route: 065
  3. HIZENTRA [Suspect]
     Active Substance: HUMAN IMMUNOGLOBULIN G
     Indication: IMMUNODEFICIENCY COMMON VARIABLE
     Dosage: UNK
     Route: 065
     Dates: start: 2019

REACTIONS (5)
  - Infusion site erythema [Recovering/Resolving]
  - Infusion site pruritus [Recovered/Resolved]
  - Nonspecific reaction [Unknown]
  - Infusion site warmth [Recovering/Resolving]
  - Infusion site bruising [Unknown]

NARRATIVE: CASE EVENT DATE: 20210220
